FAERS Safety Report 17938646 (Version 1)
Quarter: 2020Q2

REPORT INFORMATION
  Report Type: Spontaneous
  Country: DE (occurrence: DE)
  Receive Date: 20200625
  Receipt Date: 20200625
  Transmission Date: 20200714
  Serious: Yes (Death, Hospitalization)
  Sender: FDA-Public Use
  Company Number: DE-TEVA-2020-DE-1790600

PATIENT
  Age: 84 Year
  Sex: Female

DRUGS (5)
  1. MARCUMAR [Suspect]
     Active Substance: PHENPROCOUMON
     Dosage: ACCORDING TO INR
  2. SIMVASTATIN. [Concomitant]
     Active Substance: SIMVASTATIN
     Dosage: 20 MILLIGRAM DAILY; 0-0-1-0
  3. METAMIZOL [Concomitant]
     Active Substance: METAMIZOLE SODIUM
     Dosage: 1500 MILLIGRAM DAILY; 500 MG, IF NECESSARY
  4. BISOPROLOL [Suspect]
     Active Substance: BISOPROLOL
     Dosage: 5 MILLIGRAM DAILY; 2.5 MG, 1-0-1-0
  5. COLECALCIFEROL (VITAMIN D) [Concomitant]
     Dosage: 1 DOSAGE FORMS DAILY; 1000 IE, 1-0-0-0

REACTIONS (6)
  - Tachypnoea [Unknown]
  - Haematoma [Unknown]
  - Pyrexia [Unknown]
  - Fracture [Unknown]
  - Disturbance in attention [Unknown]
  - Fall [Unknown]
